FAERS Safety Report 20132949 (Version 1)
Quarter: 2021Q4

REPORT INFORMATION
  Report Type: Spontaneous
  Country: CA (occurrence: CA)
  Receive Date: 20211201
  Receipt Date: 20211201
  Transmission Date: 20220303
  Serious: Yes (Hospitalization)
  Sender: FDA-Public Use
  Company Number: CA-TEVA-2021-CA-1981524

PATIENT
  Age: 67 Year
  Sex: Female

DRUGS (2)
  1. ETOPOSIDE [Suspect]
     Active Substance: ETOPOSIDE
     Dosage: 155 MILLIGRAM DAILY;
     Route: 042
  2. CISPLATIN [Concomitant]
     Active Substance: CISPLATIN
     Route: 042

REACTIONS (3)
  - Acute coronary syndrome [Unknown]
  - Acute myocardial infarction [Unknown]
  - Product quality issue [Unknown]
